FAERS Safety Report 8467829-4 (Version None)
Quarter: 2012Q2

REPORT INFORMATION
  Report Type: 
  Country: None (occurrence: None)
  Receive Date: 20120626
  Receipt Date: 20120604
  Transmission Date: 20120825
  Serious: Yes (Hospitalization)
  Sender: FDA-Public Use
  Company Number: CA-GLAXOSMITHKLINE-A0981890A

PATIENT
  Sex: Male

DRUGS (1)
  1. AVODART [Suspect]
     Indication: PROSTATIC DISORDER
     Dosage: 1CAP PER DAY
     Route: 048

REACTIONS (2)
  - URINARY RETENTION [None]
  - PAIN [None]
